FAERS Safety Report 5484981-3 (Version None)
Quarter: 2007Q4

REPORT INFORMATION
  Report Type: 
  Country: None (occurrence: None)
  Receive Date: 20071003
  Receipt Date: 20070911
  Transmission Date: 20080405
  Serious: Yes (Other)
  Sender: FDA-Public Use
  Company Number: AEUSA200700201

PATIENT
  Sex: Male

DRUGS (2)
  1. ALBUMIN (HUMAN) [Suspect]
     Indication: HYPOALBUMINAEMIA
     Dates: start: 20070731, end: 20070804
  2. DIURETICS [Concomitant]

REACTIONS (13)
  - BLOOD CULTURE POSITIVE [None]
  - CHILLS [None]
  - CITROBACTER INFECTION [None]
  - DYSPNOEA [None]
  - HAEMOGLOBIN DECREASED [None]
  - HYPOTENSION [None]
  - HYPOXIA [None]
  - INFUSION RELATED REACTION [None]
  - LYMPHOCYTE PERCENTAGE INCREASED [None]
  - NEUTROPHIL PERCENTAGE DECREASED [None]
  - ORTHOPNOEA [None]
  - PLATELET COUNT DECREASED [None]
  - PULMONARY OEDEMA [None]
